FAERS Safety Report 8382589-3 (Version None)
Quarter: 2012Q2

REPORT INFORMATION
  Report Type: 
  Country: None (occurrence: None)
  Receive Date: 20120524
  Receipt Date: 20120522
  Transmission Date: 20120825
  Serious: Yes (Life-Threatening, Hospitalization, Other)
  Sender: FDA-Public Use
  Company Number: PHEH2007US13089

PATIENT
  Sex: Female
  Weight: 79.819 kg

DRUGS (17)
  1. AREDIA [Suspect]
     Dosage: UNK UKN, QMO
  2. ALKERAN [Concomitant]
     Dosage: UNK UKN, UNK
     Dates: end: 19980101
  3. ALTABAX [Concomitant]
  4. CLEOCIN HYDROCHLORIDE [Concomitant]
  5. MULTI-VITAMINS [Concomitant]
  6. PREDNISONE TAB [Concomitant]
     Dosage: UNK UKN, UNK
     Dates: start: 20060101
  7. EXTRA STRENGTH TYLENOL [Concomitant]
  8. SYNTHROID [Concomitant]
  9. ZOMETA [Suspect]
     Dosage: UNK UKN, UNK
     Route: 042
  10. DEXAMETHASONE [Concomitant]
  11. VELCADE [Concomitant]
  12. PREDNISONE TAB [Concomitant]
     Dosage: UNK UKN, UNK
     Dates: end: 19980101
  13. CYMBALTA [Concomitant]
  14. LISINOPRIL [Concomitant]
  15. CHEMOTHERAPEUTICS NOS [Concomitant]
  16. COUMADIN [Concomitant]
  17. REVLIMID [Concomitant]

REACTIONS (76)
  - RENAL FAILURE [None]
  - PAIN IN JAW [None]
  - GASTROINTESTINAL HAEMORRHAGE [None]
  - BONE DISORDER [None]
  - EXOSTOSIS [None]
  - CYSTITIS NONINFECTIVE [None]
  - MUSCULOSKELETAL DISCOMFORT [None]
  - STAPHYLOCOCCAL INFECTION [None]
  - GASTROINTESTINAL TOXICITY [None]
  - BLEPHARITIS [None]
  - SPINAL COMPRESSION FRACTURE [None]
  - OSTEOPOROSIS [None]
  - DEFORMITY [None]
  - OSTEOARTHRITIS [None]
  - SEBORRHOEIC KERATOSIS [None]
  - COLONIC POLYP [None]
  - FUNGAL INFECTION [None]
  - SKIN BACTERIAL INFECTION [None]
  - PAIN IN EXTREMITY [None]
  - SPINAL OSTEOARTHRITIS [None]
  - CELLULITIS [None]
  - GASTROOESOPHAGEAL REFLUX DISEASE [None]
  - ATAXIA [None]
  - URINARY TRACT INFECTION [None]
  - CONSTIPATION [None]
  - SKIN ULCER [None]
  - PERITONITIS [None]
  - NEUROPATHY PERIPHERAL [None]
  - CATARACT [None]
  - VISION BLURRED [None]
  - MENTAL STATUS CHANGES [None]
  - RESPIRATORY FAILURE [None]
  - BONE EROSION [None]
  - PLANTAR FASCIITIS [None]
  - FALL [None]
  - MALNUTRITION [None]
  - ACTINOMYCOSIS [None]
  - DEPRESSED MOOD [None]
  - ESSENTIAL HYPERTENSION [None]
  - SQUAMOUS CELL CARCINOMA [None]
  - COLITIS [None]
  - SUPRAVENTRICULAR TACHYCARDIA [None]
  - PLEURAL EFFUSION [None]
  - PANIC ATTACK [None]
  - DIARRHOEA [None]
  - ATELECTASIS [None]
  - OSTEONECROSIS OF JAW [None]
  - BASAL CELL CARCINOMA [None]
  - TENDONITIS [None]
  - BRONCHITIS [None]
  - RENAL CYST [None]
  - HYPOTHYROIDISM [None]
  - MENINGIOMA [None]
  - ILEUS PARALYTIC [None]
  - ATROPHY [None]
  - ARTHRALGIA [None]
  - ARRHYTHMIA [None]
  - SEPTIC SHOCK [None]
  - HERPES ZOSTER [None]
  - CARDIOMEGALY [None]
  - OSTEOPENIA [None]
  - WEIGHT DECREASED [None]
  - INFECTION [None]
  - PANCYTOPENIA [None]
  - BURSITIS [None]
  - NEOPLASM MALIGNANT [None]
  - PNEUMONIA [None]
  - TONGUE DISORDER [None]
  - BONE LESION [None]
  - POLYP [None]
  - ASTHENIA [None]
  - ROSACEA [None]
  - ACQUIRED DIAPHRAGMATIC EVENTRATION [None]
  - ANXIETY [None]
  - DYSPNOEA [None]
  - GAIT DISTURBANCE [None]
